FAERS Safety Report 4453472-0 (Version None)
Quarter: 2004Q3

REPORT INFORMATION
  Report Type: 
  Country: None (occurrence: None)
  Receive Date: 20040920
  Receipt Date: 20040818
  Transmission Date: 20050211
  Serious: Yes (Hospitalization)
  Sender: FDA-Public Use
  Company Number: PH-MERCK-0408PHL00006

PATIENT
  Age: 57 Year
  Sex: Male

DRUGS (2)
  1. METOPROLOL TARTRATE [Concomitant]
     Indication: HYPERTENSION
     Route: 048
  2. ZOCOR [Suspect]
     Route: 048
     Dates: start: 20040101, end: 20040101

REACTIONS (4)
  - MEDICATION ERROR [None]
  - MUSCLE CRAMP [None]
  - URINARY INCONTINENCE [None]
  - URINARY TRACT INFECTION [None]
